FAERS Safety Report 22096010 (Version 1)
Quarter: 2023Q1

REPORT INFORMATION
  Report Type: Spontaneous
  Country: US (occurrence: US)
  Receive Date: 20230315
  Receipt Date: 20230315
  Transmission Date: 20230418
  Serious: Yes (Other)
  Sender: FDA-Public Use
  Company Number: US-LUNDBECK-DKLU3059425

PATIENT
  Age: 64 Year
  Sex: Female

DRUGS (1)
  1. VYEPTI [Suspect]
     Active Substance: EPTINEZUMAB-JJMR
     Indication: Migraine
     Route: 041
     Dates: start: 20221125

REACTIONS (11)
  - Loss of consciousness [Unknown]
  - Road traffic accident [Unknown]
  - Concussion [Unknown]
  - Post-traumatic neck syndrome [Unknown]
  - COVID-19 [Unknown]
  - Dizziness [Unknown]
  - Head injury [Unknown]
  - Ligament sprain [Unknown]
  - Blood pressure abnormal [Unknown]
  - Migraine [Unknown]
  - Back injury [Unknown]

NARRATIVE: CASE EVENT DATE: 20221201
